FAERS Safety Report 21950988 (Version 2)
Quarter: 2023Q1

REPORT INFORMATION
  Report Type: Report from Study
  Country: KR (occurrence: None)
  Receive Date: 20230203
  Receipt Date: 20230220
  Transmission Date: 20230418
  Serious: Yes (Death)
  Sender: FDA-Public Use
  Company Number: KR-ROCHE-3276550

PATIENT
  Age: 78 Year
  Sex: Male
  Weight: 77.4 kg

DRUGS (15)
  1. TIRAGOLUMAB [Suspect]
     Active Substance: TIRAGOLUMAB
     Indication: Non-small cell lung cancer metastatic
     Dosage: DATE OF LAST DOSE PRIOR TO ADVERSE EVENT: 12/JAN/2023.
     Route: 042
     Dates: start: 20220728, end: 20230130
  2. ATEZOLIZUMAB [Suspect]
     Active Substance: ATEZOLIZUMAB
     Indication: Non-small cell lung cancer metastatic
     Dosage: DATE OF LAST DOSE PRIOR TO ADVERSE EVENT: 12/JAN/2023.
     Route: 041
     Dates: start: 20220728, end: 20230130
  3. CARDURA XL [Concomitant]
     Active Substance: DOXAZOSIN MESYLATE
     Dates: start: 2020, end: 20230129
  4. VALIUM [Concomitant]
     Active Substance: DIAZEPAM
     Dates: start: 2020, end: 20230129
  5. MEGACE F [Concomitant]
     Dates: start: 20220906, end: 20230129
  6. MOMETASONE FUROATE [Concomitant]
     Active Substance: MOMETASONE FUROATE
     Dates: start: 20220906, end: 20230129
  7. MAGMIL S [Concomitant]
     Dates: start: 20220929, end: 20230129
  8. CODEINE [Concomitant]
     Active Substance: CODEINE
     Dates: start: 20221020, end: 20230129
  9. ERDOSTEINE [Concomitant]
     Active Substance: ERDOSTEINE
     Dates: start: 20221020, end: 20230129
  10. RABEPRAZOLE SODIUM [Concomitant]
     Active Substance: RABEPRAZOLE SODIUM
     Dates: start: 20230112, end: 20230129
  11. METHYLPREDNISOLONE [Concomitant]
     Active Substance: METHYLPREDNISOLONE
     Dates: start: 20230112, end: 20230129
  12. PENIRAMIN [Concomitant]
     Dates: start: 20230112, end: 20230129
  13. AZEPTIN (SOUTH KOREA) [Concomitant]
     Dates: start: 20230112, end: 20230129
  14. SYNATURA [Concomitant]
     Dates: start: 20230112, end: 20230129
  15. ACETAMINOPHEN [Concomitant]
     Active Substance: ACETAMINOPHEN
     Dates: start: 20230112, end: 20230129

REACTIONS (1)
  - Disease progression [Fatal]

NARRATIVE: CASE EVENT DATE: 20230130
